FAERS Safety Report 18072951 (Version 1)
Quarter: 2020Q3

REPORT INFORMATION
  Report Type: Spontaneous
  Country: US (occurrence: US)
  Receive Date: 20200727
  Receipt Date: 20200727
  Transmission Date: 20201103
  Serious: Yes (Death, Other)
  Sender: FDA-Public Use
  Company Number: None

PATIENT
  Age: 67 Year
  Sex: Male
  Weight: 129 kg

DRUGS (10)
  1. LABETALOL [Concomitant]
     Active Substance: LABETALOL\LABETALOL HYDROCHLORIDE
  2. REMDESIVIR 100MG/20ML [Suspect]
     Active Substance: REMDESIVIR
     Indication: COVID-19
     Route: 042
     Dates: start: 20200714, end: 20200718
  3. DILTIAZEM. [Concomitant]
     Active Substance: DILTIAZEM
  4. HYDRALAZINE [Concomitant]
     Active Substance: HYDRALAZINE HYDROCHLORIDE
  5. REMDESIVIR 100MG INJECTION [Suspect]
     Active Substance: REMDESIVIR
     Dosage: FREQUENCY DAILY X 4 DAYS
     Route: 042
  6. FENTANYL. [Concomitant]
     Active Substance: FENTANYL
  7. ENOXAPARIN [Concomitant]
     Active Substance: ENOXAPARIN
  8. DEXAMETHASONE. [Concomitant]
     Active Substance: DEXAMETHASONE
  9. METOPROLOL. [Concomitant]
     Active Substance: METOPROLOL
  10. PROPOFOL. [Concomitant]
     Active Substance: PROPOFOL

REACTIONS (3)
  - Hypertension [None]
  - Slow response to stimuli [None]
  - Tachycardia [None]

NARRATIVE: CASE EVENT DATE: 20200723
